FAERS Safety Report 6276963-9 (Version None)
Quarter: 2009Q3

REPORT INFORMATION
  Report Type: 
  Country: None (occurrence: None)
  Receive Date: 20090722
  Receipt Date: 20081003
  Transmission Date: 20100115
  Serious: Yes (Hospitalization)
  Sender: FDA-Public Use
  Company Number: US-BRISTOL-MYERS SQUIBB COMPANY-14394092

PATIENT
  Age: 64 Year
  Sex: Female

DRUGS (9)
  1. PRINIVIL TABS 10 MG [Suspect]
     Indication: HYPERTENSION
     Route: 048
  2. COUMADIN [Suspect]
  3. POTASSIUM CHLORIDE [Suspect]
  4. MEVACOR [Suspect]
  5. CLONIDINE [Suspect]
  6. AZMACORT [Suspect]
     Dosage: 2 DOSAGEFORM = 2 PUFFS
  7. COMBIVENT [Suspect]
     Dosage: 2 DOSAGEFORM = 2 PUFFS
  8. ASTELIN [Suspect]
     Dosage: NASAL SPRAY
     Route: 045
  9. PRILOSEC [Suspect]

REACTIONS (6)
  - CONSTIPATION [None]
  - DIARRHOEA [None]
  - INTERNATIONAL NORMALISED RATIO DECREASED [None]
  - MYALGIA [None]
  - NAUSEA [None]
  - VOMITING [None]
